FAERS Safety Report 9678787 (Version 1)
Quarter: 2013Q4

REPORT INFORMATION
  Report Type: Report from Study
  Country: US (occurrence: US)
  Receive Date: 20131108
  Receipt Date: 20131108
  Transmission Date: 20140711
  Serious: Yes (Hospitalization, Other)
  Sender: FDA-Public Use
  Company Number: US-ABBVIE-13P-163-1164249-00

PATIENT
  Age: 48 Year
  Sex: 0
  Weight: 81.72 kg

DRUGS (8)
  1. HUMIRA [Suspect]
     Indication: CROHN^S DISEASE
     Dosage: ONCE
     Route: 058
     Dates: start: 20130805, end: 20130805
  2. HUMIRA [Suspect]
     Dosage: ONCE
     Route: 058
     Dates: start: 20130819, end: 20130819
  3. HUMIRA [Suspect]
     Route: 058
     Dates: start: 20130902, end: 201310
  4. CALCIUM + VITAMIN D [Concomitant]
     Indication: MINERAL SUPPLEMENTATION
  5. VITAMIN B12 [Concomitant]
     Indication: VITAMIN B12 DEFICIENCY
  6. IBUPROFEN [Concomitant]
     Indication: PAIN
  7. 6-MP [Concomitant]
     Indication: CROHN^S DISEASE
  8. PENTASA [Concomitant]
     Indication: PRODUCT USED FOR UNKNOWN INDICATION

REACTIONS (8)
  - Pruritus [Recovered/Resolved]
  - Urticaria [Recovered/Resolved]
  - Hypoaesthesia [Recovered/Resolved]
  - Paraesthesia [Recovered/Resolved]
  - Dyspnoea [Recovered/Resolved]
  - Arthralgia [Recovered/Resolved]
  - Malaise [Recovered/Resolved]
  - Pyrexia [Recovered/Resolved]
